FAERS Safety Report 12446586 (Version 2)
Quarter: 2016Q3

REPORT INFORMATION
  Report Type: Spontaneous
  Country: JP (occurrence: JP)
  Receive Date: 20160608
  Receipt Date: 20160701
  Transmission Date: 20161109
  Serious: Yes (Hospitalization, Disabling)
  Sender: FDA-Public Use
  Company Number: JP-ASTRAZENECA-2016SE59420

PATIENT
  Age: 25775 Day
  Sex: Female
  Weight: 60 kg

DRUGS (19)
  1. SILECE [Concomitant]
     Active Substance: FLUNITRAZEPAM
     Dates: start: 201510
  2. THIATON [Concomitant]
     Active Substance: TIQUIZIUM BROMIDE
     Dates: start: 201508, end: 201508
  3. SILECE [Concomitant]
     Active Substance: FLUNITRAZEPAM
     Dates: start: 20151030
  4. BIOFERMIN [Concomitant]
     Active Substance: BACILLUS SUBTILIS\LACTOBACILLUS ACIDOPHILUS\STREPTOCOCCUS FAECAIS
     Dosage: 3 GRAM DAILY
     Dates: start: 201603, end: 201603
  5. IRESSA [Suspect]
     Active Substance: GEFITINIB
     Indication: LUNG NEOPLASM MALIGNANT
     Route: 048
     Dates: start: 20160212, end: 20160616
  6. CRESTOR [Concomitant]
     Active Substance: ROSUVASTATIN CALCIUM
     Indication: HYPERLIPIDAEMIA
     Route: 048
     Dates: start: 20150821
  7. AZILVA [Concomitant]
     Active Substance: AZILSARTAN KAMEDOXOMIL
     Indication: HYPERTENSION
     Dates: start: 20160219
  8. VITANEURIN [Concomitant]
     Dates: start: 20160413
  9. MINOCYCLINE HYDROCHLORIDE. [Concomitant]
     Active Substance: MINOCYCLINE HYDROCHLORIDE
     Dates: start: 20160530
  10. BIOFERMIN [Concomitant]
     Active Substance: BACILLUS SUBTILIS\LACTOBACILLUS ACIDOPHILUS\STREPTOCOCCUS FAECAIS
     Dosage: 1 GRAM, DAILY
     Dates: start: 201508, end: 201508
  11. IRESSA [Suspect]
     Active Substance: GEFITINIB
     Indication: LUNG NEOPLASM MALIGNANT
     Route: 048
     Dates: start: 20160617
  12. CRAVIT [Concomitant]
     Active Substance: LEVOFLOXACIN
     Dates: start: 201507, end: 201507
  13. TRIMEBUTINE MALEATE [Concomitant]
     Active Substance: TRIMEBUTINE MALEATE
     Dates: start: 201603, end: 201603
  14. CERCINE [Concomitant]
     Active Substance: DIAZEPAM
     Dates: start: 201510, end: 201510
  15. OXATOMIDE [Concomitant]
     Active Substance: OXATOMIDE
     Dates: start: 20150911
  16. IRESSA [Suspect]
     Active Substance: GEFITINIB
     Indication: LUNG NEOPLASM MALIGNANT
     Route: 048
     Dates: start: 20150630, end: 20160211
  17. BLOPRESS [Concomitant]
     Active Substance: CANDESARTAN CILEXETIL
     Indication: HYPERTENSION
     Dates: start: 20150821, end: 20160218
  18. ALLELOCK [Concomitant]
     Active Substance: OLOPATADINE HYDROCHLORIDE
     Dates: start: 20160205
  19. BIOFERMIN [Concomitant]
     Active Substance: BACILLUS SUBTILIS\LACTOBACILLUS ACIDOPHILUS\STREPTOCOCCUS FAECAIS

REACTIONS (2)
  - Rash pruritic [Not Recovered/Not Resolved]
  - Alopecia [Unknown]

NARRATIVE: CASE EVENT DATE: 20150911
